FAERS Safety Report 5127378-8 (Version None)
Quarter: 2006Q4

REPORT INFORMATION
  Report Type: 
  Country: None (occurrence: None)
  Receive Date: 20061010
  Receipt Date: 20060927
  Transmission Date: 20070319
  Serious: Yes (Life-Threatening, Hospitalization)
  Sender: FDA-Public Use
  Company Number: GXKR2006CH05994

PATIENT
  Age: 42 Year
  Sex: Male

DRUGS (4)
  1. AMLODIPINE [Suspect]
     Dosage: 1000 MG, ONCE/SINGLE, ORAL
     Route: 048
  2. CHLORTHALIDONE [Suspect]
     Dosage: 3000 MG, ONCE/SINGLE, ORAL
     Route: 048
  3. MEFENAMIC ACID [Suspect]
     Dosage: 3000 MG, ONCE/SINGLE, ORAL
     Route: 048
  4. ALCOHOL (ETHANOL) [Suspect]

REACTIONS (12)
  - ANURIA [None]
  - BLOOD CREATININE INCREASED [None]
  - CARDIOMEGALY [None]
  - EJECTION FRACTION DECREASED [None]
  - HYPOTENSION [None]
  - INTENTIONAL OVERDOSE [None]
  - LETHARGY [None]
  - LEUKOCYTOSIS [None]
  - NAUSEA [None]
  - PULMONARY OEDEMA [None]
  - SUICIDE ATTEMPT [None]
  - VOMITING [None]
